FAERS Safety Report 13491886 (Version 1)
Quarter: 2017Q2

REPORT INFORMATION
  Report Type: Spontaneous
  Country: DE (occurrence: DE)
  Receive Date: 20170427
  Receipt Date: 20170427
  Transmission Date: 20170830
  Serious: Yes (Other)
  Sender: FDA-Public Use
  Company Number: DE-ELI_LILLY_AND_COMPANY-DE201704009229

PATIENT
  Sex: Female

DRUGS (5)
  1. AURORIX [Concomitant]
     Active Substance: MOCLOBEMIDE
     Dosage: UNK, UNKNOWN
     Route: 065
  2. ROEKAN [Concomitant]
     Dosage: UNK, UNKNOWN
     Route: 065
  3. HUMULIN N [Suspect]
     Active Substance: INSULIN HUMAN
     Indication: TYPE 1 DIABETES MELLITUS
     Dosage: 9 IU, UNKNOWN
     Route: 058
     Dates: start: 1989
  4. VITAMIN B [Concomitant]
     Active Substance: VITAMIN B
     Dosage: UNK, UNKNOWN
     Route: 065
  5. HUMALOG [Suspect]
     Active Substance: INSULIN LISPRO
     Indication: TYPE 1 DIABETES MELLITUS
     Dosage: 9 IU, UNKNOWN
     Route: 058
     Dates: start: 1989

REACTIONS (2)
  - Syncope [Recovered/Resolved]
  - Blood glucose abnormal [Recovered/Resolved]
